FAERS Safety Report 6073227-3 (Version None)
Quarter: 2009Q1

REPORT INFORMATION
  Report Type: 
  Country: None (occurrence: None)
  Receive Date: 20090211
  Receipt Date: 20081104
  Transmission Date: 20090719
  Serious: No
  Sender: FDA-Public Use
  Company Number: A0754822A

PATIENT
  Sex: Female

DRUGS (1)
  1. ALTABAX [Suspect]

REACTIONS (2)
  - BURNING SENSATION [None]
  - CONVERSION DISORDER [None]
